FAERS Safety Report 18523028 (Version 1)
Quarter: 2020Q4

REPORT INFORMATION
  Report Type: Spontaneous
  Country: US (occurrence: US)
  Receive Date: 20201119
  Receipt Date: 20201119
  Transmission Date: 20210114
  Serious: Yes (Other)
  Sender: FDA-Public Use
  Company Number: US-MYLANLABS-2020M1095850

PATIENT
  Age: 67 Year
  Sex: Male

DRUGS (3)
  1. BENZATROPINE [Suspect]
     Active Substance: BENZTROPINE
     Dosage: HIS GASTROENTEROLOGIST ALSO PRESCRIBED HIM BENZTROPINE...
     Route: 048
  2. HALOPERIDOL. [Suspect]
     Active Substance: HALOPERIDOL
     Indication: SCHIZOPHRENIA
     Dosage: 50 MILLIGRAM, MONTHLY
     Route: 030
  3. BENZATROPINE [Suspect]
     Active Substance: BENZTROPINE
     Indication: EXTRAPYRAMIDAL DISORDER
     Dosage: 0.5 MILLIGRAM, BID, 0.5 MG TWO TIMES A DAY AS NEEDED
     Route: 048

REACTIONS (2)
  - Dysuria [Recovered/Resolved]
  - Constipation [Recovered/Resolved]
